FAERS Safety Report 8163641 (Version 2)
Quarter: 2014Q1

REPORT INFORMATION
  Report Type: Spontaneous
  Country: US (occurrence: US)
  Receive Date: 20110930
  Receipt Date: 20140127
  Transmission Date: 20141002
  Serious: Yes (Other)
  Sender: FDA-Public Use
  Company Number: US-BAYER-2011-091269

PATIENT
  Age: 46 Year
  Sex: Female
  Weight: 88.89 kg

DRUGS (8)
  1. YAZ [Suspect]
     Indication: CONTRACEPTION
     Dosage: UNK
     Dates: start: 200904, end: 200909
  2. ROPINIROLE HYDROCHLORIDE [Concomitant]
     Dosage: 3 MG, CONT
     Route: 048
  3. FAMOTIDINE [Concomitant]
     Dosage: 20 MG, UNK
     Route: 048
     Dates: start: 20090829
  4. CITALOPRAM [Concomitant]
     Dosage: 40 MG, UNK
     Route: 048
     Dates: start: 20090517
  5. CLARITIN-D [Concomitant]
     Route: 048
  6. WELLBUTRIN [Concomitant]
     Route: 048
  7. PEPCID [Concomitant]
  8. REQUIP [Concomitant]

REACTIONS (3)
  - Cholecystitis [None]
  - Cholecystectomy [None]
  - Pain [None]
